FAERS Safety Report 9385173 (Version 1)
Quarter: 2013Q3

REPORT INFORMATION
  Report Type: Spontaneous
  Country: FR (occurrence: FR)
  Receive Date: 20130705
  Receipt Date: 20130705
  Transmission Date: 20140515
  Serious: Yes (Hospitalization)
  Sender: FDA-Public Use
  Company Number: FR-009507513-1307FRA000990

PATIENT
  Age: 75 Year
  Sex: Female

DRUGS (9)
  1. FOSAVANCE [Suspect]
     Indication: OSTEOPOROSIS
     Dosage: 1 DF, QW
     Route: 048
     Dates: start: 201008, end: 20110322
  2. CACIT VITAMINE D3 [Suspect]
     Indication: OSTEOPOROSIS
     Dosage: 1 DF, QD
     Route: 048
     Dates: start: 201008, end: 20110322
  3. ZYMAD [Suspect]
     Indication: OSTEOPOROSIS
     Dosage: 1 DF, QM
     Route: 048
     Dates: start: 201008, end: 20110322
  4. CARDENSIEL [Concomitant]
     Indication: PRODUCT USED FOR UNKNOWN INDICATION
     Route: 048
  5. CORDARONE [Concomitant]
     Indication: PRODUCT USED FOR UNKNOWN INDICATION
     Route: 048
  6. KARDEGIC [Concomitant]
     Route: 048
  7. LEVOTHYROX [Concomitant]
     Route: 048
  8. GUTRON [Concomitant]
     Route: 048
  9. LEXOMIL [Concomitant]
     Route: 048

REACTIONS (2)
  - Hypercalcaemia [Not Recovered/Not Resolved]
  - Asthenia [Not Recovered/Not Resolved]
